FAERS Safety Report 17307847 (Version 3)
Quarter: 2020Q1

REPORT INFORMATION
  Report Type: Report from Study
  Country: US (occurrence: US)
  Receive Date: 20200123
  Receipt Date: 20200217
  Transmission Date: 20200409
  Serious: Yes (Other)
  Sender: FDA-Public Use
  Company Number: US-MYLANLABS-2020M1007309

PATIENT
  Sex: Female

DRUGS (5)
  1. MYRBETRIQ [Interacting]
     Active Substance: MIRABEGRON
     Dosage: 50 MILLIGRAM, QD
     Route: 048
     Dates: end: 201909
  2. MYRBETRIQ [Interacting]
     Active Substance: MIRABEGRON
     Dosage: UNK
  3. TRAMADOL. [Suspect]
     Active Substance: TRAMADOL
     Indication: PAIN
     Dosage: UNK
     Route: 065
  4. MYRBETRIQ [Interacting]
     Active Substance: MIRABEGRON
     Indication: PRODUCT USED FOR UNKNOWN INDICATION
     Dosage: UNK
  5. MYRBETRIQ [Interacting]
     Active Substance: MIRABEGRON
     Dosage: 50 MILLIGRAM, QD
     Route: 048
     Dates: start: 201910

REACTIONS (8)
  - Tension headache [Unknown]
  - Hyperhidrosis [Unknown]
  - Drug interaction [Unknown]
  - Faeces pale [Unknown]
  - Chromaturia [Unknown]
  - Rhinorrhoea [Unknown]
  - Rib fracture [Unknown]
  - Body temperature increased [Unknown]
